FAERS Safety Report 7617588-X (Version None)
Quarter: 2011Q3

REPORT INFORMATION
  Report Type: 
  Country: None (occurrence: None)
  Receive Date: 20110718
  Receipt Date: 20110705
  Transmission Date: 20111222
  Serious: Yes (Other)
  Sender: FDA-Public Use
  Company Number: NL-JNJFOC-20110305883

PATIENT
  Age: 44 Year
  Sex: Male
  Weight: 71 kg

DRUGS (1)
  1. INFLIXIMAB [Suspect]
     Indication: HIDRADENITIS
     Dosage: 15 INFUSIONS
     Route: 042
     Dates: start: 20060831, end: 20080807

REACTIONS (1)
  - POLYARTHRITIS [None]
